FAERS Safety Report 13043916 (Version 1)
Quarter: 2016Q4

REPORT INFORMATION
  Report Type: Spontaneous
  Country: US (occurrence: US)
  Receive Date: 20161220
  Receipt Date: 20161220
  Transmission Date: 20170207
  Serious: No
  Sender: FDA-Public Use
  Company Number: US-ROCHE-1011980

PATIENT
  Sex: Male

DRUGS (1)
  1. ZELBORAF [Suspect]
     Active Substance: VEMURAFENIB
     Indication: MALIGNANT MELANOMA
     Route: 048
     Dates: start: 20111019

REACTIONS (10)
  - Skin discolouration [Recovering/Resolving]
  - Radiation skin injury [Recovering/Resolving]
  - Fatigue [Recovering/Resolving]
  - Acne [Unknown]
  - Muscular weakness [Unknown]
  - Scab [Unknown]
  - Rash [Unknown]
  - Decreased appetite [Recovering/Resolving]
  - Acne [Recovering/Resolving]
  - Mass [Recovering/Resolving]
